FAERS Safety Report 9505224 (Version 1)
Quarter: 2013Q1

REPORT INFORMATION
  Report Type: Spontaneous
  Country: US (occurrence: None)
  Receive Date: 20130220
  Receipt Date: 20130220
  Transmission Date: 20140127
  Serious: No
  Sender: FDA-Public Use
  Company Number: 1000040903

PATIENT
  Age: 70 Year
  Sex: Female

DRUGS (3)
  1. VIIBRYD (VILAZODONE HYDROCHLORIDE) [Suspect]
     Indication: DEPRESSION
     Route: 048
     Dates: start: 20121205
  2. LORAZEPAM (LORAZEPAM) [Concomitant]
  3. OXYCODONE (OXYCODONE) [Concomitant]

REACTIONS (2)
  - Insomnia [None]
  - Fatigue [None]
